FAERS Safety Report 7248452-6 (Version None)
Quarter: 2011Q1

REPORT INFORMATION
  Report Type: 
  Country: None (occurrence: None)
  Receive Date: 20110127
  Receipt Date: 20110107
  Transmission Date: 20110831
  Serious: Yes (Other)
  Sender: FDA-Public Use
  Company Number: US-B.I. PHARMACEUTICALS,INC./RIDGEFIELD-2011-BP-00608BP

PATIENT
  Sex: Male

DRUGS (6)
  1. PRADAXA [Suspect]
     Indication: ATRIAL FIBRILLATION
     Dates: start: 20101205, end: 20101206
  2. LEVOXYL [Concomitant]
     Indication: THYROID DISORDER
  3. SPIRIVA [Suspect]
     Indication: CHRONIC OBSTRUCTIVE PULMONARY DISEASE
     Dates: start: 20080101
  4. SINGULAIR [Concomitant]
     Indication: CHRONIC OBSTRUCTIVE PULMONARY DISEASE
  5. DILTIAZEM [Concomitant]
     Indication: ATRIAL FIBRILLATION
  6. SIMVASTATIN [Concomitant]
     Indication: PROPHYLAXIS

REACTIONS (2)
  - BLADDER CANCER [None]
  - BLOOD URINE PRESENT [None]
